FAERS Safety Report 11533764 (Version 2)
Quarter: 2015Q4

REPORT INFORMATION
  Report Type: Report from Study
  Country: UA (occurrence: UA)
  Receive Date: 20150922
  Receipt Date: 20151001
  Transmission Date: 20160304
  Serious: Yes (Death)
  Sender: FDA-Public Use
  Company Number: UA-AMGEN-UKRCT2015097224

PATIENT
  Age: 57 Year
  Sex: Male
  Weight: 78 kg

DRUGS (10)
  1. DARBEPOETIN ALFA [Suspect]
     Active Substance: DARBEPOETIN ALFA
     Indication: ANAEMIA OF MALIGNANT DISEASE
     Dosage: 500 MUG/ML, Q3WK
     Route: 065
     Dates: start: 20150506, end: 20150819
  2. DIPHENHYDRAMINUM [Concomitant]
     Indication: PREMEDICATION
     Dosage: 10 MG, UNK
     Dates: start: 20150506
  3. OSETRON [Concomitant]
     Indication: PREMEDICATION
     Dosage: 8 MG, UNK
     Dates: start: 20150506
  4. KETOROLAC [Concomitant]
     Active Substance: KETOROLAC\KETOROLAC TROMETHAMINE
     Indication: MUSCULOSKELETAL PAIN
     Dosage: 30 MG, UNK
     Dates: start: 20150610
  5. CARBOPLATIN. [Suspect]
     Active Substance: CARBOPLATIN
     Indication: CHEMOTHERAPY
     Dosage: 796 MG, UNK
     Route: 065
     Dates: start: 20150506, end: 20150819
  6. DEXAMETHASONE. [Concomitant]
     Active Substance: DEXAMETHASONE
     Indication: PREMEDICATION
     Dosage: 4-8 MG, UNK
     Dates: start: 20150504
  7. DEXAMETHASONE. [Concomitant]
     Active Substance: DEXAMETHASONE
     Indication: PREMEDICATION
  8. RANITIDINE [Concomitant]
     Active Substance: RANITIDINE\RANITIDINE HYDROCHLORIDE
     Indication: PREMEDICATION
     Dosage: 20 MG, UNK
     Dates: start: 20150506
  9. MELOXICAM. [Concomitant]
     Active Substance: MELOXICAM
     Indication: MUSCULOSKELETAL PAIN
     Dosage: 15 MG, UNK
     Dates: start: 20150617, end: 20150627
  10. PACLITAXEL. [Suspect]
     Active Substance: PACLITAXEL
     Indication: CHEMOTHERAPY
     Dosage: 348 MG, UNK
     Route: 065
     Dates: start: 20150506, end: 20150819

REACTIONS (1)
  - Death [Fatal]

NARRATIVE: CASE EVENT DATE: 20150902
